FAERS Safety Report 9753184 (Version 1)
Quarter: 2013Q4

REPORT INFORMATION
  Report Type: Spontaneous
  Country: US (occurrence: US)
  Receive Date: 20131213
  Receipt Date: 20131213
  Transmission Date: 20140711
  Serious: No
  Sender: FDA-Public Use
  Company Number: US-GILEAD-2010-0026917

PATIENT
  Age: 17 Year
  Sex: Male
  Weight: 42.18 kg

DRUGS (8)
  1. LETAIRIS [Suspect]
     Indication: PULMONARY ARTERIAL HYPERTENSION
     Route: 048
     Dates: start: 20081126
  2. HCTZ [Concomitant]
  3. SINGULAIR [Concomitant]
  4. ZYRTEC [Concomitant]
  5. AZITHROMYCIN [Concomitant]
  6. VERAMYST [Concomitant]
  7. NEXIUM [Concomitant]
  8. XOPENEX [Concomitant]

REACTIONS (4)
  - Haemoptysis [Recovering/Resolving]
  - Beta haemolytic streptococcal infection [Recovering/Resolving]
  - Chest pain [Recovering/Resolving]
  - Malaise [Recovering/Resolving]
